FAERS Safety Report 12776741 (Version 1)
Quarter: 2016Q3

REPORT INFORMATION
  Report Type: Report from Study
  Country: DE (occurrence: DE)
  Receive Date: 20160923
  Receipt Date: 20160923
  Transmission Date: 20161109
  Serious: Yes (Hospitalization)
  Sender: FDA-Public Use
  Company Number: US-ASTRAZENECA-2016SF00951

PATIENT
  Age: 1 Year
  Sex: Male

DRUGS (6)
  1. SYNAGIS [Suspect]
     Active Substance: PALIVIZUMAB
     Indication: ANTIVIRAL PROPHYLAXIS
     Dosage: 86 MG
     Route: 030
     Dates: start: 20101201, end: 20101201
  2. SYNAGIS [Suspect]
     Active Substance: PALIVIZUMAB
     Indication: ANTIVIRAL PROPHYLAXIS
     Dosage: 92 MG
     Route: 030
     Dates: start: 20110322, end: 20110322
  3. SYNAGIS [Suspect]
     Active Substance: PALIVIZUMAB
     Indication: ANTIVIRAL PROPHYLAXIS
     Dosage: 80 MG
     Route: 030
     Dates: start: 20101103, end: 20101103
  4. SYNAGIS [Suspect]
     Active Substance: PALIVIZUMAB
     Indication: ANTIVIRAL PROPHYLAXIS
     Dosage: 84 MG
     Route: 030
     Dates: start: 20101227, end: 20101227
  5. SYNAGIS [Suspect]
     Active Substance: PALIVIZUMAB
     Indication: ANTIVIRAL PROPHYLAXIS
     Dosage: 95 MG
     Route: 030
     Dates: start: 20110222, end: 20110222
  6. SYNAGIS [Suspect]
     Active Substance: PALIVIZUMAB
     Indication: ANTIVIRAL PROPHYLAXIS
     Dosage: 95 MG
     Route: 030
     Dates: start: 20110125, end: 20110125

REACTIONS (3)
  - Bronchitis [Unknown]
  - Respiratory syncytial virus test positive [Unknown]
  - Poor weight gain neonatal [Unknown]

NARRATIVE: CASE EVENT DATE: 20110222
